FAERS Safety Report 25716163 (Version 1)
Quarter: 2025Q3

REPORT INFORMATION
  Report Type: Spontaneous
  Country: US (occurrence: US)
  Receive Date: 20250822
  Receipt Date: 20250822
  Transmission Date: 20251020
  Serious: No
  Sender: BAYER HEALTHCARE LLC
  Company Number: US-BAYER-2025A111153

PATIENT

DRUGS (2)
  1. MIRALAX [Suspect]
     Active Substance: POLYETHYLENE GLYCOL 3350
     Dosage: 3 DF, QD
     Route: 048
     Dates: start: 20250811
  2. MIRALAX [Suspect]
     Active Substance: POLYETHYLENE GLYCOL 3350
     Dosage: 3 DF, QD, SECOND WEEK
     Route: 048
     Dates: start: 202508

REACTIONS (2)
  - Incorrect dose administered [None]
  - Incorrect product administration duration [None]

NARRATIVE: CASE EVENT DATE: 20250811
